FAERS Safety Report 21700559 (Version 1)
Quarter: 2022Q4

REPORT INFORMATION
  Report Type: Report from Study
  Country: US (occurrence: US)
  Receive Date: 20221208
  Receipt Date: 20221208
  Transmission Date: 20230113
  Serious: No
  Sender: FDA-Public Use
  Company Number: US-ABBVIE-4193912

PATIENT
  Sex: Male

DRUGS (5)
  1. HUMIRA [Suspect]
     Active Substance: ADALIMUMAB
     Indication: Proctitis ulcerative
     Dosage: FORM STRENGTH- 40 MG
     Route: 058
  2. HUMIRA [Suspect]
     Active Substance: ADALIMUMAB
     Dosage: FORM STRENGTH- 40 MG
     Route: 058
  3. LIALDA [Concomitant]
     Active Substance: MESALAMINE
     Indication: Product used for unknown indication
  4. PREDNISONE [Concomitant]
     Active Substance: PREDNISONE
     Indication: Product used for unknown indication
  5. LEVONORGESTREL [Concomitant]
     Active Substance: LEVONORGESTREL
     Indication: Product used for unknown indication

REACTIONS (2)
  - Colitis ulcerative [Unknown]
  - Off label use [Unknown]
